FAERS Safety Report 6645117-6 (Version None)
Quarter: 2010Q1

REPORT INFORMATION
  Report Type: 
  Country: None (occurrence: None)
  Receive Date: 20100305
  Receipt Date: 20100215
  Transmission Date: 20100710
  Serious: No
  Sender: FDA-Public Use
  Company Number: 2010-00256

PATIENT
  Age: 22 Year
  Sex: Female
  Weight: 61.2356 kg

DRUGS (1)
  1. ZICAM EXTREME CONGESTION NASAL GEL [Suspect]
     Dosage: BID -1 DAY
     Dates: start: 20100214, end: 20100215

REACTIONS (2)
  - AGEUSIA [None]
  - ANOSMIA [None]
